FAERS Safety Report 5988419-9 (Version None)
Quarter: 2008Q4

REPORT INFORMATION
  Report Type: 
  Country: None (occurrence: None)
  Receive Date: 20081210
  Receipt Date: 20081201
  Transmission Date: 20090506
  Serious: Yes (Other)
  Sender: FDA-Public Use
  Company Number: JP-BAYER-200812952BYL

PATIENT
  Age: 67 Year
  Sex: Male
  Weight: 70 kg

DRUGS (12)
  1. NEXAVAR [Suspect]
     Indication: RENAL CELL CARCINOMA STAGE IV
     Dosage: UNIT DOSE: 200 MG
     Route: 048
     Dates: start: 20080819
  2. MEVALOTIN [Concomitant]
     Route: 048
     Dates: start: 20080819
  3. ZYLORIC [Concomitant]
     Route: 048
     Dates: start: 20080819
  4. BUFFERIN [Concomitant]
     Route: 048
     Dates: start: 20080819
  5. NORVASC [Concomitant]
     Route: 048
     Dates: start: 20080819
  6. TERNELIN [Concomitant]
     Route: 048
     Dates: start: 20080819
  7. CYANOCOBALAMIN [Concomitant]
     Route: 048
     Dates: start: 20080819
  8. OPALMON [Concomitant]
     Route: 048
     Dates: start: 20080819
  9. LOXONIN [Concomitant]
     Route: 048
     Dates: start: 20080819
  10. LAC-B [Concomitant]
     Route: 048
     Dates: start: 20080819
  11. MUCOSTA [Concomitant]
     Route: 048
     Dates: start: 20080819
  12. FAMOTIDINE [Concomitant]
     Route: 048
     Dates: start: 20080819

REACTIONS (5)
  - ABDOMINAL DISTENSION [None]
  - BLOOD PRESSURE INCREASED [None]
  - ERYTHEMA [None]
  - HEPATIC FUNCTION ABNORMAL [None]
  - LOCAL SWELLING [None]
